FAERS Safety Report 25895697 (Version 4)
Quarter: 2025Q4

REPORT INFORMATION
  Report Type: Spontaneous
  Country: US (occurrence: US)
  Receive Date: 20251008
  Receipt Date: 20251024
  Transmission Date: 20260118
  Serious: No
  Sender: KARYOPHARM THERAPEUTICS
  Company Number: US-KARYOPHARM-2025KPT100791

PATIENT

DRUGS (13)
  1. SELINEXOR [Suspect]
     Active Substance: SELINEXOR
     Indication: Plasma cell myeloma
     Dosage: 60MG ON DAYS 1 8 AND 15 OF A 28 DAY CYCLE
     Route: 048
     Dates: start: 20251002, end: 20251020
  2. ACETAMINOPHEN AND CODEINE [Concomitant]
     Active Substance: ACETAMINOPHEN\CODEINE PHOSPHATE
  3. ACYCLOVIR [Concomitant]
     Active Substance: ACYCLOVIR
  4. DEXAMETHASONE [Concomitant]
     Active Substance: DEXAMETHASONE
  5. ESCITALOPRAM OXALATE [Concomitant]
     Active Substance: ESCITALOPRAM OXALATE
  6. HYDROCORTISONE ACETATE [Concomitant]
     Active Substance: HYDROCORTISONE ACETATE
  7. KYPROLIS [Concomitant]
     Active Substance: CARFILZOMIB
  8. LASIX [Concomitant]
     Active Substance: FUROSEMIDE
  9. ONDANSETRON [Concomitant]
     Active Substance: ONDANSETRON
  10. SYNTHROID [Concomitant]
     Active Substance: LEVOTHYROXINE SODIUM
  11. TRAMADOL [Concomitant]
     Active Substance: TRAMADOL
  12. TUSSLIN [Concomitant]
     Active Substance: DEXTROMETHORPHAN HYDROBROMIDE\GUAIFENESIN\PHENYLEPHRINE HYDROCHLORIDE
  13. XARELTO [Concomitant]
     Active Substance: RIVAROXABAN

REACTIONS (6)
  - Rash macular [Recovered/Resolved]
  - Malaise [Unknown]
  - Hyperhidrosis [Unknown]
  - Confusional state [Recovered/Resolved]
  - Dyspnoea [Unknown]
  - Intentional dose omission [Unknown]

NARRATIVE: CASE EVENT DATE: 20251001
